FAERS Safety Report 14172767 (Version 5)
Quarter: 2019Q3

REPORT INFORMATION
  Report Type: Spontaneous
  Country: US (occurrence: US)
  Receive Date: 20171109
  Receipt Date: 20190911
  Transmission Date: 20191004
  Serious: No
  Sender: FDA-Public Use
  Company Number: US-ASTRAZENECA-2017SF13509

PATIENT
  Sex: Male
  Weight: 77.1 kg

DRUGS (1)
  1. BYDUREON [Suspect]
     Active Substance: EXENATIDE
     Indication: TYPE 2 DIABETES MELLITUS
     Route: 058
     Dates: start: 201711

REACTIONS (5)
  - Wrong technique in product usage process [Unknown]
  - Incorrect dose administered by device [Unknown]
  - Injection site nodule [Recovering/Resolving]
  - Device malfunction [Unknown]
  - Intentional device misuse [Unknown]
